FAERS Safety Report 7867845-7 (Version None)
Quarter: 2011Q4

REPORT INFORMATION
  Report Type: 
  Country: None (occurrence: None)
  Receive Date: 20111025
  Receipt Date: 20111013
  Transmission Date: 20120403
  Serious: Yes (Hospitalization)
  Sender: FDA-Public Use
  Company Number: 1081985

PATIENT
  Sex: Male

DRUGS (2)
  1. PENTOSTATIN [Suspect]
     Indication: T-CELL PROLYMPHOCYTIC LEUKAEMIA
     Dosage: 7.2 MG
  2. ALEMTUZUMAB [Suspect]
     Indication: T-CELL PROLYMPHOCYTIC LEUKAEMIA
     Dosage: 30 MG THREE TIMES A WEEK

REACTIONS (4)
  - RESPIRATORY ACIDOSIS [None]
  - PANCYTOPENIA [None]
  - POSTERIOR REVERSIBLE ENCEPHALOPATHY SYNDROME [None]
  - SINUS TACHYCARDIA [None]
